FAERS Safety Report 5487674-1 (Version None)
Quarter: 2007Q4

REPORT INFORMATION
  Report Type: 
  Country: None (occurrence: None)
  Receive Date: 20071017
  Receipt Date: 20071009
  Transmission Date: 20080405
  Serious: Yes (Disabling)
  Sender: FDA-Public Use
  Company Number: PHBS2007NO06681

PATIENT
  Sex: Male

DRUGS (12)
  1. ZOMETA [Suspect]
     Dosage: EVERY 6 WEEKS
     Dates: start: 20070101
  2. ESTRADURIN [Concomitant]
  3. CASODEX [Concomitant]
     Dosage: 50 MG/DAY
  4. PROCREN [Concomitant]
     Dosage: 11.25 MG EVERY 3 MONTHS
     Dates: start: 20040101
  5. PREDNISOLONE [Concomitant]
     Dosage: 10 MG, QD
     Dates: start: 20060207
  6. TAXOTERE [Concomitant]
     Dosage: EVERY 3 WEEKS
     Dates: start: 20060907, end: 20070222
  7. OXYCONTIN [Concomitant]
     Dosage: 60 MG, BID
     Dates: start: 20051201
  8. PARACET [Concomitant]
     Dosage: 1 G, QID
     Dates: start: 20051201
  9. OXYNORM [Concomitant]
     Dosage: 20 MG, PRN
     Dates: start: 20051201
  10. LANSOPRAZOLE [Concomitant]
     Dosage: 15 MG, QD
     Dates: start: 20060101
  11. KLEXANE [Concomitant]
     Dosage: 100 MG, QD
     Dates: start: 20060101
  12. ZOLADEX [Concomitant]
     Dosage: EVERY 3 MONTHS

REACTIONS (4)
  - COUGH [None]
  - DYSPHONIA [None]
  - NAUSEA [None]
  - PARESIS [None]
